FAERS Safety Report 13457012 (Version 1)
Quarter: 2017Q2

REPORT INFORMATION
  Report Type: Spontaneous
  Country: US (occurrence: US)
  Receive Date: 20170419
  Receipt Date: 20170419
  Transmission Date: 20170830
  Serious: No
  Sender: FDA-Public Use
  Company Number: US-009507513-1703USA012122

PATIENT
  Sex: Male

DRUGS (1)
  1. DULERA [Suspect]
     Active Substance: FORMOTEROL FUMARATE DIHYDRATE\MOMETASONE FUROATE
     Indication: DYSPNOEA
     Dosage: 100/5 MICROGRAM; 2 PUFFS, BID; ROUTE: ORAL INHALATION
     Route: 055
     Dates: start: 2015

REACTIONS (4)
  - Drug dose omission [Unknown]
  - Product container issue [Unknown]
  - Dyspnoea [Not Recovered/Not Resolved]
  - Incorrect dose administered by device [Unknown]
